FAERS Safety Report 4923463-1 (Version None)
Quarter: 2006Q1

REPORT INFORMATION
  Report Type: 
  Country: None (occurrence: None)
  Receive Date: 20060221
  Receipt Date: 20060206
  Transmission Date: 20060701
  Serious: Yes (Other)
  Sender: FDA-Public Use
  Company Number: 2006018775

PATIENT
  Age: 82 Year
  Sex: Female

DRUGS (3)
  1. LIPITOR [Suspect]
     Indication: ILL-DEFINED DISORDER
  2. IBANDRONATE SODIUM [Concomitant]
  3. WARFARIN SODIUM [Concomitant]

REACTIONS (2)
  - HYPOTHYROIDISM [None]
  - INSOMNIA [None]
